FAERS Safety Report 8853056 (Version 4)
Quarter: 2012Q4

REPORT INFORMATION
  Report Type: 
  Country: US (occurrence: US)
  Receive Date: 20121022
  Receipt Date: 20121227
  Transmission Date: 20130627
  Serious: Yes (Other)
  Sender: FDA-Public Use
  Company Number: US-BAYER-2012-107907

PATIENT
  Age: 21 Year
  Sex: Female
  Weight: 63.49 kg

DRUGS (4)
  1. MIRENA [Suspect]
     Indication: CONTRACEPTION
     Dosage: 20 mcg/24hr, CONT
     Route: 015
     Dates: start: 20120918, end: 20120918
  2. MIRENA [Suspect]
     Indication: MENORRHAGIA
     Dosage: 20 mcg/24hr, CONT
     Route: 015
     Dates: start: 20121004, end: 20121004
  3. MIRENA [Suspect]
     Indication: CONTRACEPTION
     Dosage: 20 mcg/24hr, CONT
     Route: 015
     Dates: start: 20121004
  4. LIDOCAINE [Concomitant]
     Indication: ANALGESIA

REACTIONS (5)
  - Device dislocation [Recovered/Resolved]
  - Procedural pain [Recovered/Resolved]
  - Procedural pain [Recovered/Resolved]
  - Device dislocation [Recovered/Resolved]
  - Device deployment issue [None]
